FAERS Safety Report 5958829-4 (Version None)
Quarter: 2008Q4

REPORT INFORMATION
  Report Type: 
  Country: None (occurrence: None)
  Receive Date: 20081117
  Receipt Date: 20081105
  Transmission Date: 20090506
  Serious: Yes (Hospitalization)
  Sender: FDA-Public Use
  Company Number: WAES 0809USA01998

PATIENT
  Age: 42 Year
  Sex: Female
  Weight: 53.978 kg

DRUGS (9)
  1. ISENTRESS [Suspect]
     Indication: HIV INFECTION
     Dosage: 400 MG/Q12H/PO
     Route: 048
     Dates: start: 20080805, end: 20080910
  2. DARUNAVIR UNK [Suspect]
     Indication: HIV INFECTION
     Dosage: 600 MG/Q12H/PO
     Route: 048
     Dates: start: 20080805, end: 20080828
  3. ETRAVIRINE UNK [Suspect]
     Indication: HIV INFECTION
     Dosage: 200 MG/Q12H/PO
     Route: 048
     Dates: start: 20080805, end: 20080910
  4. BACTRIM DS [Suspect]
     Dosage: DAILY/PO
     Route: 048
     Dates: start: 20080606
  5. LOMOTIL [Concomitant]
  6. TRUVADA [Concomitant]
  7. ZOFRAN [Concomitant]
  8. AZITHROMYCIN [Concomitant]
  9. ZIDOVUDINE [Concomitant]

REACTIONS (54)
  - ACTIVATED PARTIAL THROMBOPLASTIN TIME PROLONGED [None]
  - AIDS CHOLANGIOPATHY [None]
  - ALVEOLITIS ALLERGIC [None]
  - ANAEMIA [None]
  - ASTHENIA [None]
  - BACK PAIN [None]
  - BLOOD ALBUMIN DECREASED [None]
  - CACHEXIA [None]
  - CHILLS [None]
  - CHOLECYSTITIS [None]
  - CHOLELITHIASIS [None]
  - COUGH [None]
  - CULTURE POSITIVE [None]
  - CYTOMEGALOVIRUS TEST POSITIVE [None]
  - DECREASED APPETITE [None]
  - DIARRHOEA [None]
  - DRUG HYPERSENSITIVITY [None]
  - DYSPEPSIA [None]
  - DYSPNOEA EXERTIONAL [None]
  - ENTEROCOCCAL INFECTION [None]
  - FATIGUE [None]
  - FEELING ABNORMAL [None]
  - FUNGUS CULTURE POSITIVE [None]
  - GASTROOESOPHAGEAL REFLUX DISEASE [None]
  - HEPATIC STEATOSIS [None]
  - HEPATOMEGALY [None]
  - HEPATOTOXICITY [None]
  - HOT FLUSH [None]
  - HYPOAESTHESIA [None]
  - HYPOPHAGIA [None]
  - IMMUNE RECONSTITUTION SYNDROME [None]
  - INTERNATIONAL NORMALISED RATIO INCREASED [None]
  - LETHARGY [None]
  - LICHENOID KERATOSIS [None]
  - NAUSEA [None]
  - OBSTRUCTION [None]
  - ODYNOPHAGIA [None]
  - OROPHARYNGEAL PAIN [None]
  - PAIN IN EXTREMITY [None]
  - PANCREATITIS [None]
  - PENICILLIOSIS [None]
  - PNEUMOCYSTIS JIROVECI PNEUMONIA [None]
  - POST-TUSSIVE VOMITING [None]
  - PYREXIA [None]
  - RASH MACULO-PAPULAR [None]
  - REFUSAL OF TREATMENT BY PATIENT [None]
  - RENAL CYST [None]
  - RENAL FAILURE ACUTE [None]
  - STREPTOCOCCAL INFECTION [None]
  - THROMBOCYTOPENIA [None]
  - TRICUSPID VALVE INCOMPETENCE [None]
  - TUBULOINTERSTITIAL NEPHRITIS [None]
  - URTICARIA [None]
  - VOMITING [None]
